FAERS Safety Report 7551471-3 (Version None)
Quarter: 2011Q2

REPORT INFORMATION
  Report Type: 
  Country: None (occurrence: None)
  Receive Date: 20110616
  Receipt Date: 20110602
  Transmission Date: 20111010
  Serious: Yes (Hospitalization, Other)
  Sender: FDA-Public Use
  Company Number: US-BAYER-2011-024057

PATIENT
  Age: 30 Year
  Sex: Female
  Weight: 77.098 kg

DRUGS (12)
  1. REGLAN [Concomitant]
     Dosage: DAILY DOSE 10 MG
     Route: 048
  2. PROVERA [Concomitant]
     Dosage: DAILY DOSE 10 MG
     Route: 048
  3. ZOFRAN [Concomitant]
     Dosage: DAILY DOSE 4 MG
     Route: 048
  4. XANAX [Concomitant]
     Dosage: 1 TABLET
  5. YAZ [Suspect]
     Indication: PREMENSTRUAL SYNDROME
     Dosage: UNK
     Dates: start: 20040101, end: 20080101
  6. OMNICEF [Concomitant]
     Dosage: DAILY DOSE 300 MG
     Route: 048
  7. NEXIUM [Concomitant]
     Dosage: DAILY DOSE 40 MG
     Route: 048
  8. REGLAN [Concomitant]
     Dosage: DAILY DOSE 10 MG
     Route: 048
  9. YASMIN [Suspect]
     Indication: PREMENSTRUAL SYNDROME
     Dosage: UNK
     Dates: start: 20040101, end: 20080101
  10. ALLEGRA-D 12 HOUR [Concomitant]
     Dosage: 60-120 MG
  11. LEXAPRO [Concomitant]
     Dosage: DAILY
     Route: 048
  12. LISINOPRIL AND HYDROCHLOROTHIAZIDE [Concomitant]
     Dosage: 20 MG/12.5MG, 1 TABLET, DAILY
     Route: 048

REACTIONS (7)
  - GALLBLADDER DISORDER [None]
  - CHOLECYSTITIS CHRONIC [None]
  - EMOTIONAL DISTRESS [None]
  - ANHEDONIA [None]
  - THROMBOSIS [None]
  - INJURY [None]
  - PAIN [None]
